FAERS Safety Report 11152648 (Version 2)
Quarter: 2015Q3

REPORT INFORMATION
  Report Type: Spontaneous
  Country: DE (occurrence: DE)
  Receive Date: 20150601
  Receipt Date: 20150731
  Transmission Date: 20151125
  Serious: Yes (Other)
  Sender: FDA-Public Use
  Company Number: DE-TEVA-565820GER

PATIENT
  Sex: Male

DRUGS (3)
  1. METFORMIN [Concomitant]
     Active Substance: METFORMIN HYDROCHLORIDE
     Route: 065
  2. DICLOFENAC-RATIOPHARM 100 MG ZAEPFCHEN [Suspect]
     Active Substance: DICLOFENAC
     Indication: PAIN
     Route: 065
     Dates: start: 2015
  3. GLIBENCLAMID [Concomitant]
     Active Substance: GLYBURIDE
     Route: 065

REACTIONS (1)
  - Blood glucose increased [Recovered/Resolved]
